FAERS Safety Report 4384237-6 (Version None)
Quarter: 2004Q2

REPORT INFORMATION
  Report Type: 
  Country: None (occurrence: None)
  Receive Date: 20040607
  Receipt Date: 20040121
  Transmission Date: 20050107
  Serious: Yes (Other)
  Sender: FDA-Public Use
  Company Number: 334563

PATIENT
  Sex: Female
  Weight: 3.1 kg

DRUGS (2)
  1. ACCUTANE [Suspect]
     Indication: ACNE
     Dosage: 40 MG 2 PER 1 DAY ORAL
     Route: 048
     Dates: start: 20021015, end: 20030415
  2. ADVICOR [Concomitant]

REACTIONS (1)
  - LIVE BIRTH [None]
